FAERS Safety Report 9742648 (Version 1)
Quarter: 2013Q4

REPORT INFORMATION
  Report Type: Spontaneous
  Country: US (occurrence: US)
  Receive Date: 20131210
  Receipt Date: 20131210
  Transmission Date: 20140711
  Serious: No
  Sender: FDA-Public Use
  Company Number: US-009507513-1312USA002299

PATIENT
  Sex: Female

DRUGS (2)
  1. SAPHRIS [Suspect]
     Indication: MAJOR DEPRESSION
     Dosage: 1 TABLET AT BEDTIME
     Route: 060
     Dates: start: 201311, end: 201311
  2. CELEXA [Concomitant]

REACTIONS (3)
  - Hypomania [Recovering/Resolving]
  - Feeling abnormal [Recovering/Resolving]
  - Inappropriate schedule of drug administration [Unknown]
